FAERS Safety Report 13911335 (Version 1)
Quarter: 2017Q3

REPORT INFORMATION
  Report Type: Spontaneous
  Country: DE (occurrence: DE)
  Receive Date: 20170828
  Receipt Date: 20170828
  Transmission Date: 20171127
  Serious: Yes (Congenital Anomaly, Other)
  Sender: FDA-Public Use
  Company Number: DE-UCBSA-2017033087

PATIENT
  Age: 0 Year
  Sex: Female
  Weight: 2.3 kg

DRUGS (4)
  1. OSPOLOT [Suspect]
     Active Substance: SULTHIAME
     Indication: EPILEPSY
     Dosage: 150 MG, 2X/DAY (BID)
     Route: 064
     Dates: start: 201601, end: 20161003
  2. LEVETIRACETAM. [Suspect]
     Active Substance: LEVETIRACETAM
     Indication: EPILEPSY
     Dosage: 1000 MG, 2X/DAY (BID)
     Route: 064
     Dates: start: 201601, end: 20160210
  3. LEVETIRACETAM. [Suspect]
     Active Substance: LEVETIRACETAM
     Dosage: 1250 MG DAILY
     Route: 064
     Dates: start: 20160211, end: 20161003
  4. BELLA HEXAL [Concomitant]
     Active Substance: CYPROTERONE ACETATE\ETHINYL ESTRADIOL
     Indication: CONTRACEPTION
     Dosage: 2 MG, ONCE DAILY (QD)
     Route: 064
     Dates: start: 201601, end: 20160204

REACTIONS (3)
  - Small for dates baby [Unknown]
  - Congenital cyst [Not Recovered/Not Resolved]
  - Foetal exposure during pregnancy [Unknown]

NARRATIVE: CASE EVENT DATE: 2016
